FAERS Safety Report 7600470-1 (Version None)
Quarter: 2011Q3

REPORT INFORMATION
  Report Type: 
  Country: None (occurrence: None)
  Receive Date: 20110711
  Receipt Date: 20110621
  Transmission Date: 20111222
  Serious: No
  Sender: FDA-Public Use
  Company Number: US-B.I. PHARMACEUTICALS,INC./RIDGEFIELD-2011-BP-15957BP

PATIENT
  Age: 83 Year
  Sex: Female

DRUGS (9)
  1. ASPIRIN [Concomitant]
     Dosage: 81 MG
     Route: 048
  2. LEVOTHYROXINE SODIUM [Concomitant]
     Indication: HYPOTHYROIDISM
     Dosage: 0.125 MG
     Route: 048
  3. PRADAXA [Suspect]
     Indication: ATRIAL FIBRILLATION
     Dosage: 300 MG
     Route: 048
     Dates: start: 20110527
  4. LENOXIN [Concomitant]
     Indication: ATRIAL FIBRILLATION
     Route: 048
  5. IRON TABLET [Concomitant]
     Route: 048
  6. VITAMIN D [Concomitant]
     Dosage: 4000 MU
     Route: 048
  7. LISINOPRIL [Concomitant]
     Indication: HYPERTENSION
     Dosage: 12.5 MG
     Route: 048
  8. LIVALO [Concomitant]
     Indication: BLOOD CHOLESTEROL INCREASED
     Route: 048
  9. DILTIAZEM [Concomitant]
     Indication: HYPERTENSION
     Dosage: 180 MG
     Route: 048

REACTIONS (3)
  - DYSURIA [None]
  - MICTURITION URGENCY [None]
  - POLLAKIURIA [None]
